FAERS Safety Report 5207336-5 (Version None)
Quarter: 2007Q1

REPORT INFORMATION
  Report Type: 
  Country: None (occurrence: None)
  Receive Date: 20070112
  Receipt Date: 20070112
  Transmission Date: 20070707
  Serious: Yes (Other)
  Sender: FDA-Public Use
  Company Number: US-GLAXOSMITHKLINE-A0635296A

PATIENT
  Age: 81 Year
  Sex: Female

DRUGS (10)
  1. ECOTRIN ADULT LOW STRENGTH TABLETS [Suspect]
     Indication: PROPHYLAXIS
     Dosage: 1TAB PER DAY
     Route: 048
     Dates: start: 20061101
  2. ASCORBIC ACID [Concomitant]
  3. ZOVIRAX [Concomitant]
  4. ATIVAN [Concomitant]
  5. SLOW-FE [Concomitant]
  6. CITRUCEL [Concomitant]
     Indication: GASTROINTESTINAL DISORDER
     Route: 048
  7. B-12 [Concomitant]
  8. CALCIUM [Concomitant]
  9. CENTRAL VITAMIN [Concomitant]
  10. TOPROL-XL [Concomitant]

REACTIONS (5)
  - CATHETER RELATED COMPLICATION [None]
  - HAEMATURIA [None]
  - HAEMOGLOBIN DECREASED [None]
  - HAEMORRHAGE [None]
  - THROMBOSIS [None]
